FAERS Safety Report 10052505 (Version 1)
Quarter: 2014Q2

REPORT INFORMATION
  Report Type: Spontaneous
  Country: US (occurrence: US)
  Receive Date: 20140402
  Receipt Date: 20140402
  Transmission Date: 20141212
  Serious: Yes (Hospitalization)
  Sender: FDA-Public Use
  Company Number: US-SA-2014SA037859

PATIENT
  Age: 74 Year
  Sex: Female

DRUGS (2)
  1. NASACORT ALLERGY [Suspect]
     Indication: SEASONAL ALLERGY
     Dosage: DOSE: 2 SPRAYS ONCE A DAY.?PRODUCT STARTED A MONTH AGO
     Route: 065
  2. JANUVIA [Suspect]
     Route: 065

REACTIONS (2)
  - Urinary tract infection [Unknown]
  - Blood pressure increased [Unknown]
